FAERS Safety Report 9437900 (Version 1)
Quarter: 2013Q3

REPORT INFORMATION
  Report Type: Spontaneous
  Country: GB (occurrence: GB)
  Receive Date: 20130802
  Receipt Date: 20130802
  Transmission Date: 20140515
  Serious: Yes (Life-Threatening, Hospitalization, Disabling, Other)
  Sender: FDA-Public Use
  Company Number: GB-PFIZER INC-2013220775

PATIENT
  Age: 1 Year
  Sex: Male
  Weight: 7 kg

DRUGS (13)
  1. LINEZOLID [Suspect]
     Indication: ENTEROCOCCAL INFECTION
     Dosage: 70 MG, 3X/DAY
     Route: 042
     Dates: start: 20130611, end: 2013
  2. FLUCONAZOLE [Concomitant]
  3. SPIRONOLACTONE [Concomitant]
  4. PROPRANOLOL [Concomitant]
  5. CHLOROTHIAZIDE [Concomitant]
  6. LACTULOSE [Concomitant]
  7. DOMPERIDONE [Concomitant]
  8. COLECALCIFEROL [Concomitant]
  9. CLONIDINE [Concomitant]
  10. FUROSEMIDE [Concomitant]
  11. ACETAZOLAMIDE [Concomitant]
  12. METHADONE [Concomitant]
  13. DIAZEPAM [Concomitant]

REACTIONS (7)
  - Circulatory collapse [Recovered/Resolved with Sequelae]
  - Lactic acidosis [Recovered/Resolved]
  - Renal failure [Recovered/Resolved]
  - Diarrhoea [Recovered/Resolved]
  - Dehydration [Recovered/Resolved]
  - Hepatic failure [Recovered/Resolved]
  - Alanine aminotransferase increased [Recovered/Resolved]
